FAERS Safety Report 7611823-X (Version None)
Quarter: 2011Q3

REPORT INFORMATION
  Report Type: 
  Country: None (occurrence: None)
  Receive Date: 20110715
  Receipt Date: 20110711
  Transmission Date: 20111222
  Serious: Yes (Death)
  Sender: FDA-Public Use
  Company Number: JP-SANOFI-AVENTIS-2011SA044278

PATIENT
  Age: 24 Month
  Sex: Male
  Weight: 12 kg

DRUGS (5)
  1. CYCLOPHOSPHAMIDE [Suspect]
     Indication: NEUROBLASTOMA
     Route: 065
     Dates: start: 20110709, end: 20110709
  2. RASURITEK INTRAVENOUS [Suspect]
     Route: 041
     Dates: start: 20110629, end: 20110629
  3. ONCOVIN [Suspect]
     Indication: NEUROBLASTOMA
     Route: 065
     Dates: start: 20110709, end: 20110709
  4. RASURITEK INTRAVENOUS [Suspect]
     Route: 041
     Dates: start: 20110709, end: 20110709
  5. CISPLATIN [Suspect]
     Indication: NEUROBLASTOMA
     Route: 065
     Dates: start: 20110709, end: 20110709

REACTIONS (1)
  - PULMONARY EMBOLISM [None]
